FAERS Safety Report 8691243 (Version 2)
Quarter: 2012Q4

REPORT INFORMATION
  Report Type: 
  Country: DE (occurrence: DE)
  Receive Date: 20120730
  Receipt Date: 20121003
  Transmission Date: 20130627
  Serious: Yes (Other)
  Sender: FDA-Public Use
  Company Number: PHHY2012DE064771

PATIENT
  Age: 45 Year
  Sex: Female
  Weight: 60 kg

DRUGS (2)
  1. FEMARA [Suspect]
     Indication: BREAST CANCER
     Dosage: 2.5 mg, UNK
     Dates: start: 20120515
  2. TRENANTONE [Concomitant]
     Route: 030
     Dates: start: 20120731

REACTIONS (3)
  - Ovarian haemorrhage [Unknown]
  - Ovarian cyst [Recovered/Resolved]
  - Uterine haemorrhage [Recovered/Resolved]
